FAERS Safety Report 18362657 (Version 2)
Quarter: 2020Q4

REPORT INFORMATION
  Report Type: Other
  Country: IT (occurrence: IT)
  Receive Date: 20201009
  Receipt Date: 20201111
  Transmission Date: 20210114
  Serious: Yes (Other)
  Sender: FDA-Public Use
  Company Number: IT-ROCHE-2691276

PATIENT
  Age: 68 Year
  Sex: Male

DRUGS (1)
  1. RANIBIZUMAB. [Suspect]
     Active Substance: RANIBIZUMAB
     Indication: MACULAR TELANGIECTASIA
     Dosage: 0.5 MG (THREE-MONTHLY)
     Route: 031

REACTIONS (3)
  - Retinal ischaemia [Unknown]
  - Intentional product use issue [Unknown]
  - Off label use [Unknown]
